FAERS Safety Report 5727859-X (Version None)
Quarter: 2008Q2

REPORT INFORMATION
  Report Type: 
  Country: None (occurrence: None)
  Receive Date: 20080505
  Receipt Date: 20080423
  Transmission Date: 20081010
  Serious: Yes (Death)
  Sender: FDA-Public Use
  Company Number: US-PFIZER INC-2008036765

PATIENT
  Sex: Female
  Weight: 65.8 kg

DRUGS (16)
  1. NEURONTIN [Suspect]
     Indication: PAIN
     Dates: start: 20070901, end: 20071017
  2. SYNTHROID [Concomitant]
  3. DUONEB [Concomitant]
  4. ADVAIR HFA [Concomitant]
  5. BENAZEPRIL HYDROCHLORIDE [Concomitant]
  6. LOVASTATIN [Concomitant]
  7. GLUCOSAMINE [Concomitant]
  8. ALL OTHER THERAPEUTIC PRODUCTS [Concomitant]
  9. NAMENDA [Concomitant]
  10. FLONASE [Concomitant]
  11. AEROCEF [Concomitant]
  12. ACETYLSALICYLIC ACID SRT [Concomitant]
  13. CYMBALTA [Concomitant]
  14. VITAMIN CAP [Concomitant]
  15. ANTIOXIDANTS [Concomitant]
  16. CALCIUM [Concomitant]

REACTIONS (1)
  - DEATH [None]
